FAERS Safety Report 13847512 (Version 1)
Quarter: 2017Q3

REPORT INFORMATION
  Report Type: Spontaneous
  Country: PH (occurrence: PH)
  Receive Date: 20170808
  Receipt Date: 20170808
  Transmission Date: 20171127
  Serious: Yes (Other)
  Sender: FDA-Public Use
  Company Number: PH-009507513-1708PHL003252

PATIENT

DRUGS (2)
  1. KEYTRUDA [Suspect]
     Active Substance: PEMBROLIZUMAB
     Indication: HEPATIC CANCER STAGE IV
  2. LENVIMA [Suspect]
     Active Substance: LENVATINIB
     Indication: HEPATIC CANCER STAGE IV

REACTIONS (5)
  - Anaemia [Not Recovered/Not Resolved]
  - Coombs indirect test positive [Unknown]
  - Haemorrhage intracranial [Unknown]
  - Off label use [Unknown]
  - Autoimmune disorder [Unknown]
